FAERS Safety Report 21078050 (Version 1)
Quarter: 2022Q3

REPORT INFORMATION
  Report Type: Report from Study
  Country: CA (occurrence: CA)
  Receive Date: 20220713
  Receipt Date: 20220713
  Transmission Date: 20221027
  Serious: Yes (Hospitalization, Other)
  Sender: FDA-Public Use
  Company Number: CA-SA-SAC20211102000220

PATIENT
  Age: 70 Year
  Sex: Male

DRUGS (11)
  1. DUPILUMAB [Suspect]
     Active Substance: DUPILUMAB
     Indication: Dermatitis atopic
     Dosage: 600 MG, 1X
     Route: 058
     Dates: start: 20210924, end: 20210924
  2. DUPILUMAB [Suspect]
     Active Substance: DUPILUMAB
     Dosage: 300 MG, QOW
     Route: 058
     Dates: end: 20220324
  3. DUPILUMAB [Suspect]
     Active Substance: DUPILUMAB
     Dosage: 300 MG, QOW
     Route: 058
  4. BENADRYL [Concomitant]
     Active Substance: DIPHENHYDRAMINE HYDROCHLORIDE
     Dosage: UNK
  5. NEXIUM I.V. [Concomitant]
     Active Substance: ESOMEPRAZOLE SODIUM
     Dosage: UNK
  6. TELMISARTAN [Concomitant]
     Active Substance: TELMISARTAN
     Dosage: UNK
  7. ROSUVASTATIN [Concomitant]
     Active Substance: ROSUVASTATIN
     Dosage: UNK
  8. FUROSEMIDE [Concomitant]
     Active Substance: FUROSEMIDE
     Dosage: 20 MG, QOD
  9. OMEPRAZOLE [Concomitant]
     Active Substance: OMEPRAZOLE
     Dosage: UNK
  10. ADVIL [Concomitant]
     Active Substance: IBUPROFEN
     Dosage: UNK
  11. NEXIUM [Concomitant]
     Active Substance: ESOMEPRAZOLE MAGNESIUM
     Dosage: UNK

REACTIONS (13)
  - Rash [Recovering/Resolving]
  - Cutaneous vasculitis [Recovering/Resolving]
  - Hepatic cirrhosis [Recovering/Resolving]
  - Ascites [Recovering/Resolving]
  - Abdominal pain upper [Unknown]
  - Cardiac disorder [Unknown]
  - Intra-abdominal fluid collection [Unknown]
  - Peripheral swelling [Recovering/Resolving]
  - Hyponatraemia [Recovering/Resolving]
  - Hypervolaemia [Recovering/Resolving]
  - Oedema peripheral [Recovering/Resolving]
  - Intentional dose omission [Unknown]
  - Therapeutic response decreased [Unknown]

NARRATIVE: CASE EVENT DATE: 20220324
